FAERS Safety Report 6784261-X (Version None)
Quarter: 2010Q2

REPORT INFORMATION
  Report Type: 
  Country: None (occurrence: None)
  Receive Date: 20100622
  Receipt Date: 20100617
  Transmission Date: 20101027
  Serious: Yes (Hospitalization)
  Sender: FDA-Public Use
  Company Number: FR-WYE-G06283710

PATIENT
  Age: 56 Year
  Sex: Male

DRUGS (4)
  1. ADVIL LIQUI-GELS [Suspect]
     Dosage: UNKNOWN
     Route: 048
     Dates: start: 20100101, end: 20100101
  2. HEXAPNEUMINE SIROP [Suspect]
     Dosage: ONE SOUPSPOON AT 6:00 PM.
     Route: 048
     Dates: start: 20100101, end: 20100101
  3. DOLIPRANE [Suspect]
     Dosage: ONE TABLET OF 500 MG AT 04:00 PM
     Route: 048
     Dates: start: 20100101, end: 20100101
  4. IBUPROFEN [Suspect]
     Route: 048
     Dates: start: 20100101, end: 20100101

REACTIONS (2)
  - MASTOCYTOSIS [None]
  - SHOCK [None]
